FAERS Safety Report 8662216 (Version 2)
Quarter: 2012Q4

REPORT INFORMATION
  Report Type: Report from Study
  Country: DE (occurrence: DE)
  Receive Date: 20120712
  Receipt Date: 20121105
  Transmission Date: 20130627
  Serious: Yes (Hospitalization, Other)
  Sender: FDA-Public Use
  Company Number: DE-ABBOTT-12P-062-0953991-00

PATIENT
  Age: 25 Year
  Sex: Female
  Weight: 50 kg

DRUGS (7)
  1. HUMIRA 40 MG/ 0.8 ML PRE-FILLED SYRINGE [Suspect]
     Indication: CROHN^S DISEASE
     Route: 058
     Dates: start: 20100315, end: 201112
  2. HUMIRA 40 MG/ 0.8 ML PRE-FILLED SYRINGE [Suspect]
     Route: 058
     Dates: start: 201112, end: 201201
  3. HUMIRA 40 MG/ 0.8 ML PRE-FILLED SYRINGE [Suspect]
     Route: 058
     Dates: start: 201202, end: 20120705
  4. HUMIRA 40 MG/ 0.8 ML PRE-FILLED SYRINGE [Suspect]
     Route: 058
     Dates: start: 20120705
  5. SULFASALAZINE [Concomitant]
     Indication: CROHN^S DISEASE
     Dates: end: 2012
  6. KREON [Concomitant]
     Indication: CROHN^S DISEASE
  7. VITAMINS [Concomitant]
     Indication: CROHN^S DISEASE

REACTIONS (3)
  - Anal fistula [Not Recovered/Not Resolved]
  - Abscess [Not Recovered/Not Resolved]
  - Abscess sweat gland [Unknown]
